FAERS Safety Report 13653368 (Version 1)
Quarter: 2017Q2

REPORT INFORMATION
  Report Type: Spontaneous
  Country: US (occurrence: US)
  Receive Date: 20170614
  Receipt Date: 20170614
  Transmission Date: 20170830
  Serious: No
  Sender: FDA-Public Use
  Company Number: US-ROCHE-1465432

PATIENT
  Sex: Male

DRUGS (2)
  1. XELODA [Suspect]
     Active Substance: CAPECITABINE
     Indication: GALLBLADDER CANCER
     Dosage: 3 DAYS OF FIRST CYCLE, 2000MG AM, 1500MG PM THEN 1500MG AM, 1000MG PM
     Route: 065
  2. XELODA [Suspect]
     Active Substance: CAPECITABINE
     Dosage: 1500MG AM, 1000MG PM
     Route: 065

REACTIONS (6)
  - Fatigue [Unknown]
  - Chromaturia [Unknown]
  - Liver scan abnormal [Unknown]
  - Malaise [Unknown]
  - Faeces discoloured [Unknown]
  - Unevaluable event [Unknown]
